FAERS Safety Report 7196042-6 (Version None)
Quarter: 2010Q4

REPORT INFORMATION
  Report Type: 
  Country: None (occurrence: None)
  Receive Date: 20101223
  Receipt Date: 20101014
  Transmission Date: 20110411
  Serious: No
  Sender: FDA-Public Use
  Company Number: US-AMGEN-USASP2010000200

PATIENT

DRUGS (2)
  1. ENBREL [Suspect]
     Indication: RHEUMATOID ARTHRITIS
     Dates: start: 20030201, end: 20101001
  2. METHOTREXATE (TREXALL) [Concomitant]

REACTIONS (2)
  - COUGH [None]
  - RHINORRHOEA [None]
